FAERS Safety Report 8173924-X (Version None)
Quarter: 2012Q1

REPORT INFORMATION
  Report Type: 
  Country: None (occurrence: None)
  Receive Date: 20120229
  Receipt Date: 20120223
  Transmission Date: 20120608
  Serious: Yes (Death)
  Sender: FDA-Public Use
  Company Number: JP-CUBIST-2012S1000138

PATIENT
  Age: 85 Year
  Sex: Male
  Weight: 76 kg

DRUGS (17)
  1. SEISHOKU [Concomitant]
     Indication: NUTRITIONAL SUPPORT
     Dates: start: 20120107, end: 20120120
  2. ALL OTHER THERAPEUTIC PRODUCTS [Concomitant]
     Indication: NUTRITIONAL SUPPORT
     Dosage: DOSE UNIT:1
     Dates: start: 20120107, end: 20120126
  3. CUBICIN [Suspect]
     Route: 041
     Dates: start: 20120127, end: 20120129
  4. ZYVOX [Concomitant]
     Indication: INFECTIVE SPONDYLITIS
     Dosage: DAILY DOSAGE UNKNOWN
     Dates: start: 20120106, end: 20120119
  5. SEISHOKU [Concomitant]
     Dates: start: 20120121, end: 20120125
  6. LASIX [Concomitant]
     Route: 042
     Dates: start: 20120126, end: 20120126
  7. HICALIQ [Concomitant]
     Indication: NUTRITIONAL SUPPORT
     Dates: start: 20120107, end: 20120120
  8. CUBICIN [Suspect]
     Indication: INFECTIVE SPONDYLITIS
     Route: 041
     Dates: start: 20120119, end: 20120125
  9. CUBICIN [Suspect]
     Route: 041
     Dates: start: 20120127, end: 20120129
  10. CUBICIN [Suspect]
     Indication: PSOAS ABSCESS
     Route: 041
     Dates: start: 20120119, end: 20120125
  11. ALL OTHER THERAPEUTIC PRODUCTS [Concomitant]
     Indication: DISSEMINATED INTRAVASCULAR COAGULATION
     Dosage: DAILY DOSAGE UNKNOWN DOSE UNIT:8320
     Route: 042
     Dates: start: 20120126, end: 20120129
  12. ZYVOX [Concomitant]
     Indication: PSOAS ABSCESS
     Dosage: DAILY DOSAGE UNKNOWN
     Dates: start: 20120106, end: 20120119
  13. CARPERITIDE [Concomitant]
     Indication: CARDIAC FAILURE
     Dosage: DAILY DOSAGE UNKNOWN
     Route: 042
     Dates: start: 20120126, end: 20120128
  14. LASIX [Concomitant]
     Indication: OLIGURIA
     Route: 042
     Dates: start: 20120126, end: 20120128
  15. HICALIQ [Concomitant]
     Dates: start: 20120121, end: 20120125
  16. AMINIC /01068001/ [Concomitant]
     Indication: NUTRITIONAL SUPPORT
     Dates: start: 20120107, end: 20120125
  17. VITAJECT [Concomitant]
     Indication: NUTRITIONAL SUPPORT
     Dosage: DOSE UNIT:1
     Route: 041
     Dates: start: 20120107, end: 20120125

REACTIONS (5)
  - PLATELET COUNT DECREASED [None]
  - OLIGURIA [None]
  - ANAEMIA [None]
  - CARDIAC FAILURE [None]
  - RENAL IMPAIRMENT [None]
